FAERS Safety Report 12679431 (Version 1)
Quarter: 2016Q3

REPORT INFORMATION
  Report Type: Spontaneous
  Country: US (occurrence: US)
  Receive Date: 20160824
  Receipt Date: 20160824
  Transmission Date: 20161109
  Serious: No
  Sender: FDA-Public Use
  Company Number: US-BAYER-2016-164587

PATIENT
  Sex: Male
  Weight: 93.88 kg

DRUGS (1)
  1. CLARITIN [Suspect]
     Active Substance: LORATADINE
     Indication: SEASONAL ALLERGY
     Dosage: UNK UNK, QD
     Route: 048

REACTIONS (3)
  - Drug effect decreased [None]
  - Product use issue [None]
  - Drug effect incomplete [None]
